FAERS Safety Report 12139342 (Version 2)
Quarter: 2016Q1

REPORT INFORMATION
  Report Type: Spontaneous
  Country: TN (occurrence: TN)
  Receive Date: 20160303
  Receipt Date: 20160325
  Transmission Date: 20160526
  Serious: Yes (Other)
  Sender: FDA-Public Use
  Company Number: TN-PAR PHARMACEUTICAL COMPANIES-2016SCPR015203

PATIENT

DRUGS (1)
  1. METRONIDAZOLE. [Suspect]
     Active Substance: METRONIDAZOLE
     Indication: AMOEBIC DYSENTERY
     Dosage: UNK UNK, UNKNOWN
     Route: 048

REACTIONS (2)
  - Extraocular muscle paresis [Recovered/Resolved]
  - Toxic optic neuropathy [Recovered/Resolved]
